FAERS Safety Report 7293513-9 (Version None)
Quarter: 2011Q1

REPORT INFORMATION
  Report Type: 
  Country: None (occurrence: None)
  Receive Date: 20110215
  Receipt Date: 20110207
  Transmission Date: 20110831
  Serious: Yes (Other)
  Sender: FDA-Public Use
  Company Number: TR-MERCK-1102TUR00004

PATIENT
  Sex: Male
  Weight: 67 kg

DRUGS (4)
  1. METFORMIN [Concomitant]
     Route: 048
  2. JANUVIA [Suspect]
     Indication: TYPE 2 DIABETES MELLITUS
     Route: 048
     Dates: start: 20110122, end: 20110203
  3. ATORVASTATIN CALCIUM [Concomitant]
     Indication: HYPERLIPIDAEMIA
     Route: 048
     Dates: start: 20110122, end: 20110203
  4. PERINDOPRIL ARGININE [Concomitant]
     Route: 048

REACTIONS (2)
  - ERYTHEMA [None]
  - HYPERSENSITIVITY [None]
